FAERS Safety Report 20370236 (Version 1)
Quarter: 2022Q1

REPORT INFORMATION
  Report Type: Spontaneous
  Country: US (occurrence: None)
  Receive Date: 20220124
  Receipt Date: 20220124
  Transmission Date: 20220423
  Serious: No
  Sender: FDA-Public Use
  Company Number: None

PATIENT
  Age: 59 Year
  Sex: Female

DRUGS (1)
  1. EPCLUSA [Suspect]
     Active Substance: SOFOSBUVIR\VELPATASVIR
     Indication: Hepatitis C
     Dosage: OTHER QUANTITY : 400MG/100MG;?FREQUENCY : DAILY;?
     Route: 048
     Dates: start: 20220113

REACTIONS (6)
  - Pain [None]
  - Ageusia [None]
  - Anosmia [None]
  - Pyrexia [None]
  - Suspected COVID-19 [None]
  - Housebound [None]

NARRATIVE: CASE EVENT DATE: 20220113
